FAERS Safety Report 15928702 (Version 2)
Quarter: 2019Q2

REPORT INFORMATION
  Report Type: Spontaneous
  Country: US (occurrence: US)
  Receive Date: 20190206
  Receipt Date: 20190503
  Transmission Date: 20190711
  Serious: Yes (Death, Other)
  Sender: FDA-Public Use
  Company Number: US-ASTRAZENECA-2018SF47801

PATIENT
  Age: 81 Year
  Sex: Male

DRUGS (2)
  1. PRILOSEC [Suspect]
     Active Substance: OMEPRAZOLE MAGNESIUM
     Route: 048
     Dates: start: 2009, end: 2011
  2. NEXIUM [Suspect]
     Active Substance: ESOMEPRAZOLE MAGNESIUM
     Route: 048

REACTIONS (7)
  - Cardiac failure [Unknown]
  - Congestive cardiomyopathy [Fatal]
  - Cardiac failure congestive [Fatal]
  - Infection [Unknown]
  - Renal failure [Unknown]
  - Chronic kidney disease [Unknown]
  - Cardio-respiratory arrest [Fatal]
